FAERS Safety Report 6480002-4 (Version None)
Quarter: 2009Q4

REPORT INFORMATION
  Report Type: 
  Country: None (occurrence: None)
  Receive Date: 20091208
  Receipt Date: 20091127
  Transmission Date: 20100525
  Serious: Yes (Hospitalization, Other)
  Sender: FDA-Public Use
  Company Number: JP-SANOFI-AVENTIS-A01200901387

PATIENT
  Sex: Female
  Weight: 60 kg

DRUGS (4)
  1. OXALIPLATIN [Suspect]
     Indication: RECTAL CANCER METASTATIC
     Route: 041
     Dates: start: 20071101
  2. FLUOROURACIL [Concomitant]
     Indication: RECTAL CANCER
     Route: 041
     Dates: start: 20071101
  3. FLUOROURACIL [Concomitant]
     Route: 040
     Dates: start: 20071101
  4. AVASTIN [Concomitant]
     Indication: RECTAL CANCER
     Dosage: UNIT DOSE:  MG/KG
     Route: 041
     Dates: start: 20071101

REACTIONS (1)
  - LEUKOENCEPHALOPATHY [None]
